FAERS Safety Report 13997598 (Version 1)
Quarter: 2017Q3

REPORT INFORMATION
  Report Type: Spontaneous
  Country: IT (occurrence: IT)
  Receive Date: 20170921
  Receipt Date: 20170921
  Transmission Date: 20171128
  Serious: Yes (Hospitalization)
  Sender: FDA-Public Use
  Company Number: IT-JNJFOC-20170912709

PATIENT
  Age: 5 Year
  Sex: Female
  Weight: 14 kg

DRUGS (1)
  1. VERMOX [Suspect]
     Active Substance: MEBENDAZOLE
     Indication: PRODUCT USED FOR UNKNOWN INDICATION
     Route: 048
     Dates: start: 20170412, end: 20170412

REACTIONS (4)
  - Incorrect dose administered [Unknown]
  - Confusional state [Recovered/Resolved]
  - Agitation [Recovered/Resolved]
  - Incorrect product formulation administered [Unknown]

NARRATIVE: CASE EVENT DATE: 20170412
